FAERS Safety Report 10863782 (Version 2)
Quarter: 2015Q1

REPORT INFORMATION
  Report Type: Report from Study
  Country: US (occurrence: US)
  Receive Date: 20150223
  Receipt Date: 20150306
  Transmission Date: 20150721
  Serious: Yes (Other)
  Sender: FDA-Public Use
  Company Number: US-BAXTER-2015BAX008947

PATIENT
  Sex: Female
  Weight: 82.17 kg

DRUGS (3)
  1. GAMMAGARD LIQUID [Suspect]
     Active Substance: HUMAN IMMUNOGLOBULIN G
     Indication: IMMUNODEFICIENCY COMMON VARIABLE
     Route: 042
     Dates: start: 20111015
  2. GAMMAGARD LIQUID [Suspect]
     Active Substance: HUMAN IMMUNOGLOBULIN G
     Route: 042
     Dates: start: 20150110
  3. ZMAX [Concomitant]
     Active Substance: AZITHROMYCIN DIHYDRATE
     Indication: PRODUCT USED FOR UNKNOWN INDICATION
     Route: 065

REACTIONS (14)
  - Nausea [Recovered/Resolved]
  - Cough [Not Recovered/Not Resolved]
  - Rash pruritic [Recovered/Resolved]
  - Fatigue [Recovered/Resolved]
  - Peripheral swelling [Recovered/Resolved]
  - Infusion site extravasation [Recovered/Resolved]
  - Exfoliative rash [Recovered/Resolved]
  - Disorientation [Recovered/Resolved]
  - Dysphonia [Recovered/Resolved]
  - Vein disorder [Recovered/Resolved]
  - Rash erythematous [Recovered/Resolved]
  - Infusion related reaction [Recovered/Resolved]
  - Rotator cuff syndrome [Recovered/Resolved]
  - Asthenia [Recovered/Resolved]
